FAERS Safety Report 16079691 (Version 2)
Quarter: 2019Q2

REPORT INFORMATION
  Report Type: Spontaneous
  Country: CA (occurrence: CA)
  Receive Date: 20190315
  Receipt Date: 20190612
  Transmission Date: 20190711
  Serious: Yes (Other)
  Sender: FDA-Public Use
  Company Number: CA-TEVA-2019-CA-1022334

PATIENT
  Age: 59 Year
  Sex: Female

DRUGS (36)
  1. PREDNISONE. [Suspect]
     Active Substance: PREDNISONE
     Indication: PRODUCT USED FOR UNKNOWN INDICATION
     Route: 065
  2. ACTEMRA [Suspect]
     Active Substance: TOCILIZUMAB
     Indication: RHEUMATOID ARTHRITIS
     Route: 065
  3. DESOXIMETASONE. [Suspect]
     Active Substance: DESOXIMETASONE
     Indication: RHEUMATOID ARTHRITIS
     Route: 048
  4. GOLIMUMAB [Suspect]
     Active Substance: GOLIMUMAB
     Indication: PRODUCT USED FOR UNKNOWN INDICATION
     Route: 065
  5. HYDROXYCHLOROQUINE SULFATE. [Suspect]
     Active Substance: HYDROXYCHLOROQUINE SULFATE
     Indication: PRODUCT USED FOR UNKNOWN INDICATION
     Route: 065
  6. SALAZOPYRIN [Concomitant]
     Active Substance: SULFASALAZINE
     Indication: PRODUCT USED FOR UNKNOWN INDICATION
     Route: 065
  7. WINPRED [Suspect]
     Active Substance: PREDNISONE
     Indication: RHEUMATOID ARTHRITIS
     Route: 048
  8. METHOTREXATE. [Suspect]
     Active Substance: METHOTREXATE
     Indication: RHEUMATOID ARTHRITIS
     Dosage: 20 MILLIGRAM DAILY;
     Route: 065
  9. APO-PREDNISONE [Suspect]
     Active Substance: PREDNISONE
     Indication: RHEUMATOID ARTHRITIS
     Route: 065
  10. PHTHALYLSULFATHIAZOLE [Suspect]
     Active Substance: PHTHALYLSULFATHIAZOLE
     Indication: PRODUCT USED FOR UNKNOWN INDICATION
     Route: 065
  11. PSEUDOEPHEDRINE HCL [Suspect]
     Active Substance: PSEUDOEPHEDRINE HYDROCHLORIDE
     Indication: RHEUMATOID ARTHRITIS
     Route: 065
  12. REACTINE /00884302/ [Suspect]
     Active Substance: CETIRIZINE HYDROCHLORIDE
     Indication: RHEUMATOID ARTHRITIS
     Route: 065
  13. SULFASALAZINE. [Suspect]
     Active Substance: SULFASALAZINE
     Indication: PRODUCT USED FOR UNKNOWN INDICATION
     Route: 065
  14. DICLOFENAC [Concomitant]
     Active Substance: DICLOFENAC
     Indication: PRODUCT USED FOR UNKNOWN INDICATION
     Route: 065
  15. CETIRIZINE HYDROCHLORIDE. [Suspect]
     Active Substance: CETIRIZINE HYDROCHLORIDE
     Indication: RHEUMATOID ARTHRITIS
     Route: 065
  16. CETIRIZINE HYDROCHLORIDE W/PSEUDOEPHEDRINE [Suspect]
     Active Substance: CETIRIZINE HYDROCHLORIDE\PSEUDOEPHEDRINE HYDROCHLORIDE
     Indication: RHEUMATOID ARTHRITIS
     Route: 065
  17. PLAQUENIL /00072602/ [Suspect]
     Active Substance: HYDROXYCHLOROQUINE DIPHOSPHATE
     Indication: PRODUCT USED FOR UNKNOWN INDICATION
     Dosage: 400 MILLIGRAM DAILY;
     Route: 065
  18. METHOTREXATE. [Suspect]
     Active Substance: METHOTREXATE
     Indication: PRODUCT USED FOR UNKNOWN INDICATION
     Route: 048
  19. APO-FOLIC ACID [Suspect]
     Active Substance: FOLIC ACID
     Indication: PRODUCT USED FOR UNKNOWN INDICATION
     Route: 065
  20. FOSAMAX [Suspect]
     Active Substance: ALENDRONATE SODIUM
     Indication: RHEUMATOID ARTHRITIS
     Route: 065
  21. ORENCIA [Suspect]
     Active Substance: ABATACEPT
     Indication: RHEUMATOID ARTHRITIS
     Route: 042
  22. ORENCIA [Suspect]
     Active Substance: ABATACEPT
     Route: 058
  23. ARAVA [Suspect]
     Active Substance: LEFLUNOMIDE
     Indication: PRODUCT USED FOR UNKNOWN INDICATION
     Route: 065
  24. ARAVA [Suspect]
     Active Substance: LEFLUNOMIDE
     Indication: RHEUMATOID ARTHRITIS
     Route: 048
  25. CORTISONE ACETATE. [Suspect]
     Active Substance: CORTISONE ACETATE
     Indication: PRODUCT USED FOR UNKNOWN INDICATION
     Route: 065
  26. ENBREL [Suspect]
     Active Substance: ETANERCEPT
     Indication: RHEUMATOID ARTHRITIS
     Route: 058
  27. FOLIC ACID. [Suspect]
     Active Substance: FOLIC ACID
     Indication: PRODUCT USED FOR UNKNOWN INDICATION
     Route: 065
  28. HYDROXYCHLOROQUINE SULFATE. [Suspect]
     Active Substance: HYDROXYCHLOROQUINE SULFATE
     Indication: RHEUMATOID ARTHRITIS
     Route: 048
  29. REMICADE [Suspect]
     Active Substance: INFLIXIMAB
     Indication: RHEUMATOID ARTHRITIS
     Route: 042
  30. HUMIRA [Suspect]
     Active Substance: ADALIMUMAB
     Indication: RHEUMATOID ARTHRITIS
     Route: 058
  31. SULFATHALIDINE [Suspect]
     Active Substance: PHTHALYLSULFATHIAZOLE
     Indication: PRODUCT USED FOR UNKNOWN INDICATION
     Route: 065
  32. CIMZIA [Suspect]
     Active Substance: CERTOLIZUMAB PEGOL
     Indication: RHEUMATOID ARTHRITIS
     Route: 058
  33. FOLIC ACID. [Suspect]
     Active Substance: FOLIC ACID
     Indication: RHEUMATOID ARTHRITIS
     Route: 065
  34. RITUXAN [Suspect]
     Active Substance: RITUXIMAB
     Indication: PRODUCT USED FOR UNKNOWN INDICATION
     Route: 042
  35. SIMPONI [Suspect]
     Active Substance: GOLIMUMAB
     Indication: RHEUMATOID ARTHRITIS
     Route: 058
  36. SULFASALAZINE. [Suspect]
     Active Substance: SULFASALAZINE
     Indication: RHEUMATOID ARTHRITIS
     Dosage: 2000 MILLIGRAM DAILY;
     Route: 048

REACTIONS (15)
  - Pericarditis [Not Recovered/Not Resolved]
  - Maternal exposure during pregnancy [Not Recovered/Not Resolved]
  - Pemphigus [Not Recovered/Not Resolved]
  - Alopecia [Not Recovered/Not Resolved]
  - Hypersensitivity [Not Recovered/Not Resolved]
  - Pain [Not Recovered/Not Resolved]
  - Abdominal discomfort [Not Recovered/Not Resolved]
  - Product use issue [Not Recovered/Not Resolved]
  - Fatigue [Not Recovered/Not Resolved]
  - Contraindicated product administered [Not Recovered/Not Resolved]
  - Drug ineffective [Not Recovered/Not Resolved]
  - Rheumatoid arthritis [Not Recovered/Not Resolved]
  - Systemic lupus erythematosus [Not Recovered/Not Resolved]
  - Treatment failure [Not Recovered/Not Resolved]
  - Glossodynia [Not Recovered/Not Resolved]
